FAERS Safety Report 10925927 (Version 1)
Quarter: 2015Q1

REPORT INFORMATION
  Report Type: Spontaneous
  Country: US (occurrence: US)
  Receive Date: 20150318
  Receipt Date: 20150318
  Transmission Date: 20150721
  Serious: No
  Sender: FDA-Public Use
  Company Number: US-GLAXOSMITHKLINE-US2015004391

PATIENT
  Sex: Female
  Weight: 75 kg

DRUGS (2)
  1. EQUATE NICOTINE [Suspect]
     Active Substance: NICOTINE
     Indication: EX-TOBACCO USER
     Dosage: 21 MG, UNK
     Dates: start: 20150113
  2. EQUATE NICOTINE [Suspect]
     Active Substance: NICOTINE

REACTIONS (1)
  - Pain in extremity [Not Recovered/Not Resolved]
